FAERS Safety Report 4710559-2 (Version None)
Quarter: 2005Q3

REPORT INFORMATION
  Report Type: 
  Country: None (occurrence: None)
  Receive Date: 20050711
  Receipt Date: 20020614
  Transmission Date: 20060218
  Serious: Yes (Life-Threatening, Other)
  Sender: FDA-Public Use
  Company Number: 2002AP01794

PATIENT
  Age: 17824 Day
  Sex: Female
  Weight: 49.5 kg

DRUGS (11)
  1. ANAPEINE [Suspect]
     Indication: EPIDURAL ANAESTHESIA
     Route: 008
     Dates: start: 20020614, end: 20020614
  2. ANAPEINE [Suspect]
     Route: 008
     Dates: start: 20020614, end: 20020614
  3. MUCOSTA [Concomitant]
  4. URSODIOL [Concomitant]
  5. TAGAMET [Concomitant]
  6. MYSLEE [Concomitant]
  7. ATROPINE SULFATE [Concomitant]
     Route: 030
     Dates: start: 20020614, end: 20020614
  8. BUTORPHANOL TARTRATE [Concomitant]
     Route: 030
     Dates: start: 20020614, end: 20020614
  9. VEEN-D [Concomitant]
     Route: 042
     Dates: start: 20020614, end: 20020614
  10. SOLACET F [Concomitant]
  11. LIDOCAINE [Concomitant]

REACTIONS (3)
  - DEPRESSED LEVEL OF CONSCIOUSNESS [None]
  - GRAND MAL CONVULSION [None]
  - TACHYCARDIA [None]
